FAERS Safety Report 10328903 (Version 1)
Quarter: 2014Q3

REPORT INFORMATION
  Report Type: Spontaneous
  Country: US (occurrence: None)
  Receive Date: 20140717
  Receipt Date: 20140717
  Transmission Date: 20150326
  Serious: Yes (Hospitalization, Disabling, Other)
  Sender: FDA-Public Use
  Company Number: 201407006

PATIENT
  Age: 53 Year
  Sex: Male

DRUGS (2)
  1. TESTIM [Suspect]
     Active Substance: TESTOSTERONE
     Indication: BLOOD TESTOSTERONE DECREASED
     Dates: start: 2009, end: 2011
  2. ANDROGEL [Suspect]
     Active Substance: TESTOSTERONE
     Indication: BLOOD TESTOSTERONE DECREASED
     Dates: start: 2011, end: 201403

REACTIONS (5)
  - Pain [None]
  - Thrombosis [None]
  - Pulmonary embolism [None]
  - Economic problem [None]
  - Chest pain [None]

NARRATIVE: CASE EVENT DATE: 20140414
